FAERS Safety Report 24617737 (Version 1)
Quarter: 2024Q4

REPORT INFORMATION
  Report Type: Spontaneous
  Country: SK (occurrence: SK)
  Receive Date: 20241114
  Receipt Date: 20241114
  Transmission Date: 20250114
  Serious: Yes (Hospitalization)
  Sender: JOHNSON AND JOHNSON
  Company Number: SK-JNJFOC-20241128435

PATIENT
  Sex: Male

DRUGS (15)
  1. DARATUMUMAB [Suspect]
     Active Substance: DARATUMUMAB
     Indication: Plasma cell myeloma
     Dosage: CYCLE 1
     Route: 065
     Dates: start: 20240112
  2. DARATUMUMAB [Suspect]
     Active Substance: DARATUMUMAB
     Dosage: CYCLE 8
     Route: 065
     Dates: start: 20241030
  3. BORTEZOMIB [Suspect]
     Active Substance: BORTEZOMIB
     Indication: Plasma cell myeloma
     Route: 065
     Dates: start: 20231219
  4. BORTEZOMIB [Suspect]
     Active Substance: BORTEZOMIB
     Dosage: CYCLE1
     Route: 065
     Dates: start: 20240112
  5. BORTEZOMIB [Suspect]
     Active Substance: BORTEZOMIB
     Dosage: CYCLE 8
     Route: 065
     Dates: start: 20241030
  6. MELPHALAN [Suspect]
     Active Substance: MELPHALAN
     Indication: Plasma cell myeloma
     Dosage: CYCLE 1
     Route: 065
     Dates: start: 20240112
  7. MELPHALAN [Suspect]
     Active Substance: MELPHALAN
     Dosage: CYCLE 8
     Route: 065
     Dates: start: 20241030
  8. POMALIDOMIDE [Suspect]
     Active Substance: POMALIDOMIDE
     Indication: Plasma cell myeloma
     Dosage: CYCLE 1
     Route: 065
     Dates: start: 20240112
  9. POMALIDOMIDE [Suspect]
     Active Substance: POMALIDOMIDE
     Dosage: CYCLE 8
     Route: 065
     Dates: start: 20241030
  10. FUROSEMIDE [Concomitant]
     Active Substance: FUROSEMIDE
  11. EMPAGLIFLOZIN [Concomitant]
     Active Substance: EMPAGLIFLOZIN
  12. BISOPROLOL [Concomitant]
     Active Substance: BISOPROLOL\BISOPROLOL FUMARATE
  13. ALPRAZOLAM [Concomitant]
     Active Substance: ALPRAZOLAM
  14. DIETARY SUPPLEMENT\HERBALS\MILK THISTLE [Concomitant]
     Active Substance: MILK THISTLE
  15. NADROPARIN CALCIUM [Concomitant]
     Active Substance: NADROPARIN CALCIUM

REACTIONS (2)
  - Cardiac failure [Recovered/Resolved]
  - Hypotension [Recovered/Resolved]
